FAERS Safety Report 10101379 (Version 5)
Quarter: 2015Q2

REPORT INFORMATION
  Report Type: Report from Study
  Country: CA (occurrence: CA)
  Receive Date: 20140424
  Receipt Date: 20150604
  Transmission Date: 20150821
  Serious: Yes (Hospitalization, Other)
  Sender: FDA-Public Use
  Company Number: CA-AMGEN-CANSP2014028430

PATIENT
  Age: 89 Year
  Sex: Female

DRUGS (12)
  1. COVERSYL                           /00790702/ [Concomitant]
     Active Substance: PERINDOPRIL
     Dosage: 2 MG, QD
     Route: 065
  2. SOTALOL. [Concomitant]
     Active Substance: SOTALOL
     Dosage: 80 MG, QD
     Route: 065
  3. CORTISONE [Concomitant]
     Active Substance: CORTISONE\HYDROCORTISONE
  4. PREDNISONE. [Concomitant]
     Active Substance: PREDNISONE
     Dosage: 5 MG, QD
     Route: 065
  5. PANTOPRAZOLE [Concomitant]
     Active Substance: PANTOPRAZOLE SODIUM
     Dosage: 40 MG, QD
     Route: 065
  6. APO BROMAZEPAM [Concomitant]
     Dosage: 3 MG, QD
     Route: 065
  7. BROMAZEPAM [Concomitant]
     Active Substance: BROMAZEPAM
     Dosage: 3 MG, QD
  8. PANTOLOC                           /01263204/ [Concomitant]
     Active Substance: PANTOPRAZOLE SODIUM
     Dosage: UNK UNK, AS NECESSARY QD
     Route: 065
  9. PROLIA [Suspect]
     Active Substance: DENOSUMAB
     Indication: OSTEOPOROSIS POSTMENOPAUSAL
     Dosage: 60 MG, Q6MO
     Route: 058
     Dates: start: 20120403
  10. EUROFOLIC [Concomitant]
     Dosage: 5 MG, 3 TIMES/WK
     Route: 065
  11. COUMADIN [Concomitant]
     Active Substance: WARFARIN SODIUM
  12. METHOTREXATE [Concomitant]
     Active Substance: METHOTREXATE
     Dosage: 2.5 MG, QWK (3 PILLS ON WEDNESDAYS ONLY)
     Route: 065

REACTIONS (15)
  - Abasia [Recovered/Resolved]
  - Lumbar hernia [Unknown]
  - Skin plaque [Unknown]
  - Pain [Not Recovered/Not Resolved]
  - Erythema [Unknown]
  - Malaise [Unknown]
  - Pulmonary embolism [Unknown]
  - Infection [Unknown]
  - Back pain [Recovering/Resolving]
  - Pain in extremity [Unknown]
  - Urinary tract infection [Recovered/Resolved]
  - Muscular weakness [Unknown]
  - Arthritis [Unknown]
  - Unevaluable event [Unknown]
  - Pulmonary infarction [Unknown]

NARRATIVE: CASE EVENT DATE: 2013
